FAERS Safety Report 15408522 (Version 1)
Quarter: 2018Q3

REPORT INFORMATION
  Report Type: Spontaneous
  Country: GB (occurrence: FR)
  Receive Date: 20180920
  Receipt Date: 20180920
  Transmission Date: 20181010
  Serious: Yes (Hospitalization)
  Sender: FDA-Public Use
  Company Number: FR-FRESENIUS KABI-FK201809713

PATIENT
  Age: 66 Year
  Sex: Female

DRUGS (6)
  1. SUFENTA [Suspect]
     Active Substance: SUFENTANIL CITRATE
     Indication: GENERAL ANAESTHESIA
     Route: 042
     Dates: start: 20180626, end: 20180626
  2. PROPOFOL (MANUFACTURER UNKNOWN) [Suspect]
     Active Substance: PROPOFOL
     Indication: GENERAL ANAESTHESIA
     Route: 042
     Dates: start: 20180626, end: 20180626
  3. LIDOCAINE. [Suspect]
     Active Substance: LIDOCAINE
     Indication: LOCAL ANAESTHESIA
     Route: 051
     Dates: start: 20180626, end: 20180626
  4. AUGMENTIN [Suspect]
     Active Substance: AMOXICILLIN\CLAVULANATE POTASSIUM
     Indication: ANTIBIOTIC PROPHYLAXIS
     Route: 042
     Dates: start: 20180626, end: 20180626
  5. KETAMINE [Suspect]
     Active Substance: KETAMINE
     Indication: GENERAL ANAESTHESIA
     Route: 042
     Dates: start: 20180626, end: 20180626
  6. KENZEN [Concomitant]
     Active Substance: CANDESARTAN
     Indication: HYPERTENSION
     Route: 048

REACTIONS (1)
  - Anaphylactic shock [Recovered/Resolved]

NARRATIVE: CASE EVENT DATE: 20180626
